FAERS Safety Report 14505810 (Version 7)
Quarter: 2019Q4

REPORT INFORMATION
  Report Type: Report from Study
  Country: US (occurrence: US)
  Receive Date: 20180208
  Receipt Date: 20191004
  Transmission Date: 20200122
  Serious: Yes (Other)
  Sender: FDA-Public Use
  Company Number: US-JAZZ-2018-US-001827

PATIENT
  Age: 56 Year
  Sex: Female

DRUGS (21)
  1. FIORICET [Concomitant]
     Active Substance: ACETAMINOPHEN\BUTALBITAL\CAFFEINE
  2. FEXOFENADINE HCL [Concomitant]
     Active Substance: FEXOFENADINE HYDROCHLORIDE
  3. ROSUVASTATIN CALCIUM. [Concomitant]
     Active Substance: ROSUVASTATIN CALCIUM
  4. XYREM [Suspect]
     Active Substance: SODIUM OXYBATE
     Dosage: 3 G, FIRST DOSE
     Route: 048
     Dates: start: 2018
  5. DOCUSATE SODIUM. [Concomitant]
     Active Substance: DOCUSATE SODIUM
  6. ONDANSETRON [Concomitant]
     Active Substance: ONDANSETRON
  7. SUMATRIPTAN. [Concomitant]
     Active Substance: SUMATRIPTAN
  8. SENNA LAXATIVE [Concomitant]
     Active Substance: SENNOSIDES
  9. XYREM [Suspect]
     Active Substance: SODIUM OXYBATE
     Indication: NARCOLEPSY
     Dosage: 2.25 G, BID
     Route: 048
     Dates: start: 201801, end: 2018
  10. ASPIRIN 81 [Concomitant]
     Active Substance: ASPIRIN
  11. COLACE [Concomitant]
     Active Substance: DOCUSATE SODIUM
  12. EFFEXOR [Concomitant]
     Active Substance: VENLAFAXINE HYDROCHLORIDE
  13. NORTRIPTYLINE HCL [Concomitant]
     Active Substance: NORTRIPTYLINE HYDROCHLORIDE
  14. XYREM [Suspect]
     Active Substance: SODIUM OXYBATE
     Dosage: 3 G, BID
     Route: 048
     Dates: start: 2018, end: 2018
  15. XYREM [Suspect]
     Active Substance: SODIUM OXYBATE
     Dosage: 2.75 G, SECOND DOSE
     Route: 048
     Dates: start: 2018
  16. NORCO [Concomitant]
     Active Substance: ACETAMINOPHEN\HYDROCODONE BITARTRATE
  17. VALTREX [Concomitant]
     Active Substance: VALACYCLOVIR HYDROCHLORIDE
  18. LEVOTHYROXINE. [Concomitant]
     Active Substance: LEVOTHYROXINE
  19. XYREM [Suspect]
     Active Substance: SODIUM OXYBATE
     Dosage: 3.75 G, BID
     Route: 048
     Dates: start: 2018, end: 2018
  20. ADVAIR HFA [Suspect]
     Active Substance: FLUTICASONE PROPIONATE\SALMETEROL XINAFOATE
     Indication: PRODUCT USED FOR UNKNOWN INDICATION
     Dosage: UNK
     Dates: end: 201803
  21. OMEPRAZOLE. [Concomitant]
     Active Substance: OMEPRAZOLE

REACTIONS (29)
  - Lower respiratory tract infection [Recovered/Resolved]
  - Blood pressure increased [Recovering/Resolving]
  - Gait disturbance [Not Recovered/Not Resolved]
  - Onychoclasis [Not Recovered/Not Resolved]
  - Alopecia [Not Recovered/Not Resolved]
  - Condition aggravated [Unknown]
  - Feeling hot [Not Recovered/Not Resolved]
  - Glossodynia [Unknown]
  - Erythema [Not Recovered/Not Resolved]
  - Nervousness [Unknown]
  - Arthropathy [Unknown]
  - Exostosis [Unknown]
  - Grip strength decreased [Not Recovered/Not Resolved]
  - Dry skin [Not Recovered/Not Resolved]
  - Paraesthesia [Not Recovered/Not Resolved]
  - Hyperhidrosis [Not Recovered/Not Resolved]
  - Autoimmune thyroiditis [Unknown]
  - Gastrooesophageal reflux disease [Unknown]
  - Fibromyalgia [Not Recovered/Not Resolved]
  - Muscle spasms [Not Recovered/Not Resolved]
  - Feeling jittery [Unknown]
  - Hypoaesthesia [Not Recovered/Not Resolved]
  - Rhinitis [Recovered/Resolved]
  - Tremor [Not Recovered/Not Resolved]
  - Bursitis [Unknown]
  - Peripheral swelling [Unknown]
  - Peripheral coldness [Not Recovered/Not Resolved]
  - Sensory loss [Not Recovered/Not Resolved]
  - Pain in extremity [Not Recovered/Not Resolved]

NARRATIVE: CASE EVENT DATE: 2018
